FAERS Safety Report 6311880-7 (Version None)
Quarter: 2009Q3

REPORT INFORMATION
  Report Type: 
  Country: None (occurrence: None)
  Receive Date: 20090817
  Receipt Date: 20090810
  Transmission Date: 20100115
  Serious: Yes (Hospitalization)
  Sender: FDA-Public Use
  Company Number: US-MERCK-98070183

PATIENT
  Age: 43 Year
  Sex: Female
  Weight: 59 kg

DRUGS (24)
  1. SINGULAIR [Suspect]
     Indication: ASTHMA
     Route: 048
     Dates: start: 19980301, end: 19980301
  2. SINGULAIR [Suspect]
     Route: 048
     Dates: start: 19980603, end: 19980612
  3. VITAMIN A [Concomitant]
     Route: 065
     Dates: end: 19980623
  4. THEO-DUR [Concomitant]
     Route: 065
     Dates: end: 19980623
  5. SEREVENT [Concomitant]
     Dates: end: 19980623
  6. ATROVENT [Concomitant]
     Dates: start: 19950601, end: 19980623
  7. ACCOLATE [Concomitant]
     Route: 065
  8. TYLENOL (CAPLET) [Concomitant]
     Route: 065
     Dates: end: 19980623
  9. BENADRYL [Concomitant]
     Route: 065
     Dates: end: 19980623
  10. PROVENTIL-HFA [Concomitant]
     Dates: end: 19980623
  11. ZYRTEC [Concomitant]
     Route: 065
     Dates: end: 19980623
  12. PREDNISONE [Concomitant]
     Route: 048
     Dates: start: 19880101, end: 19980603
  13. PREDNISONE [Concomitant]
     Route: 065
     Dates: end: 19980623
  14. PREDNISONE [Concomitant]
     Route: 065
     Dates: start: 19980701
  15. AZMACORT [Concomitant]
     Dates: start: 19950601, end: 19980623
  16. ASTELIN [Concomitant]
     Dates: end: 19980623
  17. NASALCROM [Concomitant]
     Dates: end: 19980623
  18. B VITAMINS [Concomitant]
     Route: 065
     Dates: end: 19980623
  19. ASCORBIC ACID [Concomitant]
     Route: 065
     Dates: end: 19980623
  20. BECONASE [Concomitant]
     Route: 065
     Dates: end: 19980623
  21. SALINE [Concomitant]
     Route: 065
  22. FLONASE [Concomitant]
     Dates: end: 19980623
  23. CIPRO [Concomitant]
     Route: 065
     Dates: start: 19980309, end: 19980623
  24. TROVAN [Concomitant]
     Route: 065

REACTIONS (19)
  - ASTHMA [None]
  - CANDIDIASIS [None]
  - CHOLESTASIS [None]
  - CUSHINGOID [None]
  - DIZZINESS [None]
  - DRUG TOXICITY [None]
  - ECCHYMOSIS [None]
  - EOSINOPHIL COUNT INCREASED [None]
  - EPSTEIN-BARR VIRUS ANTIBODY POSITIVE [None]
  - GALLBLADDER DISORDER [None]
  - HAEMORRHAGE [None]
  - HEPATIC FAILURE [None]
  - HEPATITIS [None]
  - OEDEMA [None]
  - RETCHING [None]
  - SYNCOPE [None]
  - TINNITUS [None]
  - TREMOR [None]
  - URTICARIA [None]
